FAERS Safety Report 6230239-4 (Version None)
Quarter: 2009Q2

REPORT INFORMATION
  Report Type: 
  Country: None (occurrence: None)
  Receive Date: 20090615
  Receipt Date: 20090602
  Transmission Date: 20091009
  Serious: Yes (Hospitalization, Other)
  Sender: FDA-Public Use
  Company Number: DE-MYLANLABS-2009S1009828

PATIENT
  Age: 72 Year
  Sex: Female
  Weight: 77 kg

DRUGS (10)
  1. FENTANYL [Suspect]
     Indication: PAIN
     Dosage: WECHSEL ALLE 3 TAGE
     Route: 062
     Dates: start: 20070101
  2. AMLODIPINE [Suspect]
     Indication: HYPERTENSION
     Route: 048
     Dates: start: 20080501
  3. DIOVAN HCT [Concomitant]
     Indication: HYPERTENSION
     Dosage: 12,5 MG HYDROCHLOROTHIAZIDE/ 320 MG VALSARTAN
     Route: 048
  4. GODAMED /00002701/ [Concomitant]
     Indication: CAROTID ARTERY STENOSIS
     Route: 048
  5. PANTOZOL [Concomitant]
     Indication: GASTRITIS PROPHYLAXIS
     Route: 048
  6. PRESOMEN /00073001/ [Concomitant]
     Indication: OSTEOPOROSIS
     Route: 048
  7. ALENDRONSAEURE ABZ [Concomitant]
     Indication: OSTEOPOROSIS
     Route: 048
     Dates: start: 20080901
  8. VIANI [Concomitant]
     Indication: ASTHMA
     Dosage: FLUTICASONE PROPIONATE/SALMETEROL XINAFOATE
  9. CALCIMAGON-D3 [Concomitant]
     Indication: OSTEOPOROSIS
     Dosage: COLECALCIFEROL/CALCIUM CARBONATE
     Route: 048
     Dates: start: 20080901
  10. MICTONORM [Concomitant]
     Indication: MICTURITION URGENCY
     Route: 048

REACTIONS (1)
  - FAECALOMA [None]
